FAERS Safety Report 12531926 (Version 3)
Quarter: 2016Q4

REPORT INFORMATION
  Report Type: Spontaneous
  Country: US (occurrence: US)
  Receive Date: 20160706
  Receipt Date: 20161019
  Transmission Date: 20170207
  Serious: Yes (Hospitalization, Other)
  Sender: FDA-Public Use
  Company Number: US-PFIZER INC-2016252418

PATIENT
  Age: 78 Year
  Sex: Female

DRUGS (1)
  1. XELJANZ [Suspect]
     Active Substance: TOFACITINIB CITRATE
     Indication: RHEUMATOID ARTHRITIS
     Dosage: 5 MG, DAILY (1 TABLET BY MOUTH DAILY)
     Route: 048

REACTIONS (7)
  - Thrombosis [Unknown]
  - Gastrointestinal disorder [Unknown]
  - Polyp [Unknown]
  - Ulcer [Unknown]
  - Pulmonary thrombosis [Unknown]
  - Anaemia [Unknown]
  - Incorrect dosage administered [Unknown]
